FAERS Safety Report 17542674 (Version 1)
Quarter: 2020Q1

REPORT INFORMATION
  Report Type: Spontaneous
  Country: DE (occurrence: DE)
  Receive Date: 20200315
  Receipt Date: 20200315
  Transmission Date: 20200409
  Serious: Yes (Other)
  Sender: FDA-Public Use
  Company Number: DE-DEXPHARM-20200234

PATIENT
  Age: 80 Year
  Sex: Female

DRUGS (3)
  1. SEROQUEL [Suspect]
     Active Substance: QUETIAPINE FUMARATE
  2. ZELDOX [Suspect]
     Active Substance: ZIPRASIDONE
     Dosage: 20 MG, UNK
     Dates: start: 200906, end: 2012
  3. TREVILOR RETARD [Suspect]
     Active Substance: VENLAFAXINE HYDROCHLORIDE

REACTIONS (11)
  - Blood pressure abnormal [Unknown]
  - Gait disturbance [Unknown]
  - Hallucination, auditory [Unknown]
  - Somnolence [Unknown]
  - Fibromyalgia [Unknown]
  - Ear pain [Unknown]
  - Fatigue [Unknown]
  - Pain [Unknown]
  - Sleep disorder [Unknown]
  - Acne [Unknown]
  - Oropharyngeal pain [Unknown]
